FAERS Safety Report 6196425-7 (Version None)
Quarter: 2009Q2

REPORT INFORMATION
  Report Type: 
  Country: None (occurrence: None)
  Receive Date: 20090518
  Receipt Date: 20090507
  Transmission Date: 20091009
  Serious: Yes (Other)
  Sender: FDA-Public Use
  Company Number: GXKR2009NO05693

PATIENT
  Sex: Male
  Weight: 0.9 kg

DRUGS (1)
  1. FLUOXETINE [Suspect]
     Dosage: 20 MG, (MATERNAL DOSE)

REACTIONS (7)
  - AGITATION NEONATAL [None]
  - CONVULSION NEONATAL [None]
  - DRUG EXPOSURE VIA BREAST MILK [None]
  - DRUG WITHDRAWAL SYNDROME NEONATAL [None]
  - MATERNAL DRUGS AFFECTING FOETUS [None]
  - NEONATAL DISORDER [None]
  - PREMATURE BABY [None]
